FAERS Safety Report 14418295 (Version 1)
Quarter: 2018Q1

REPORT INFORMATION
  Report Type: Spontaneous
  Country: US (occurrence: US)
  Receive Date: 20180122
  Receipt Date: 20180122
  Transmission Date: 20180509
  Serious: No
  Sender: FDA-Public Use
  Company Number: US-INTERCEPT-PMOCA2017001329

PATIENT

DRUGS (3)
  1. OCALIVA [Suspect]
     Active Substance: OBETICHOLIC ACID
     Dosage: 5 MG, UNK
     Dates: start: 201707
  2. OCALIVA [Suspect]
     Active Substance: OBETICHOLIC ACID
     Indication: PRODUCT USED FOR UNKNOWN INDICATION
     Dosage: 5 MG, UNK
     Dates: start: 201704, end: 201707
  3. OCALIVA [Suspect]
     Active Substance: OBETICHOLIC ACID
     Dosage: 10 MG, QD
     Dates: start: 201707, end: 201707

REACTIONS (6)
  - Diarrhoea [Unknown]
  - Drug ineffective [Unknown]
  - Fatigue [Unknown]
  - Feeling abnormal [Unknown]
  - Arthralgia [Unknown]
  - Depression [Unknown]

NARRATIVE: CASE EVENT DATE: 2017
